FAERS Safety Report 24924813 (Version 1)
Quarter: 2025Q1

REPORT INFORMATION
  Report Type: Report from Study
  Country: US (occurrence: US)
  Receive Date: 20250204
  Receipt Date: 20250204
  Transmission Date: 20250409
  Serious: No
  Sender: EXELIXIS
  Company Number: US-EXELIXIS-CABO-24075886

PATIENT
  Age: 23 Year
  Sex: Male

DRUGS (7)
  1. CABOMETYX [Suspect]
     Active Substance: CABOZANTINIB S-MALATE
     Indication: Osteosarcoma
     Dosage: 40 MG, QD
     Dates: start: 20240312
  2. CABOMETYX [Suspect]
     Active Substance: CABOZANTINIB S-MALATE
     Dosage: 40 MG, QD
  3. PROPRANOLOL [Concomitant]
     Active Substance: PROPRANOLOL HYDROCHLORIDE
  4. MEGACE [Concomitant]
     Active Substance: MEGESTROL ACETATE
  5. IMODIUM [Concomitant]
     Active Substance: LOPERAMIDE HYDROCHLORIDE
  6. MOUTH WASH [Concomitant]
     Indication: Mouth ulceration
  7. TUMS [Concomitant]
     Active Substance: CALCIUM CARBONATE

REACTIONS (10)
  - Thyroid hormones decreased [Unknown]
  - Taste disorder [Unknown]
  - Glossodynia [Recovering/Resolving]
  - Fatigue [Not Recovered/Not Resolved]
  - Decreased appetite [Not Recovered/Not Resolved]
  - Diarrhoea [Recovered/Resolved]
  - Pain in extremity [Unknown]
  - Pulmonary mass [Unknown]
  - Gastrooesophageal reflux disease [Recovered/Resolved]
  - Off label use [Unknown]

NARRATIVE: CASE EVENT DATE: 20240412
